FAERS Safety Report 13374832 (Version 1)
Quarter: 2017Q1

REPORT INFORMATION
  Report Type: Spontaneous
  Country: US (occurrence: US)
  Receive Date: 20170327
  Receipt Date: 20170327
  Transmission Date: 20170429
  Serious: Yes (Hospitalization)
  Sender: FDA-Public Use
  Company Number: US-ENDO PHARMACEUTICALS INC-2017-001341

PATIENT
  Sex: Female

DRUGS (1)
  1. IRON SUPPLEMENT [Suspect]
     Active Substance: IRON
     Indication: MINERAL SUPPLEMENTATION
     Dosage: UNK UNK, UNKNOWN
     Route: 065

REACTIONS (1)
  - Adverse drug reaction [Unknown]
